FAERS Safety Report 5019381-3 (Version None)
Quarter: 2006Q2

REPORT INFORMATION
  Report Type: 
  Country: None (occurrence: None)
  Receive Date: 20060601
  Receipt Date: 20060518
  Transmission Date: 20061013
  Serious: Yes (Hospitalization)
  Sender: FDA-Public Use
  Company Number: 2006BI007299

PATIENT
  Age: 33 Year
  Sex: Female
  Weight: 104.3273 kg

DRUGS (2)
  1. AVONEX [Suspect]
     Indication: MULTIPLE SCLEROSIS
     Dosage: 30 UG;QW;IM
     Route: 030
     Dates: start: 19980201, end: 20030801
  2. AVONEX [Suspect]
     Indication: MULTIPLE SCLEROSIS
     Dosage: 30 UG;QW;IM
     Route: 030
     Dates: start: 20030801, end: 20060401

REACTIONS (12)
  - ABASIA [None]
  - CONDITION AGGRAVATED [None]
  - HEART RATE INCREASED [None]
  - HYPERTENSION [None]
  - INCISION SITE INFECTION [None]
  - INTERVERTEBRAL DISC PROTRUSION [None]
  - MULTIPLE SCLEROSIS [None]
  - MUSCLE RIGIDITY [None]
  - MUSCLE SPASMS [None]
  - PAIN [None]
  - STAPHYLOCOCCAL INFECTION [None]
  - WOUND SECRETION [None]
